FAERS Safety Report 5271063-9 (Version None)
Quarter: 2007Q1

REPORT INFORMATION
  Report Type: 
  Country: None (occurrence: None)
  Receive Date: 20070321
  Receipt Date: 20070319
  Transmission Date: 20070707
  Serious: Yes (Hospitalization)
  Sender: FDA-Public Use
  Company Number: US-GLAXOSMITHKLINE-A0637258A

PATIENT
  Age: 17 Year
  Sex: Male
  Weight: 148.2 kg

DRUGS (1)
  1. LAMICTAL [Suspect]
     Dosage: 150MG TWICE PER DAY
     Route: 048
     Dates: start: 20030618, end: 20050101

REACTIONS (2)
  - APLASTIC ANAEMIA [None]
  - INJURY [None]
